FAERS Safety Report 7519582-6 (Version None)
Quarter: 2011Q2

REPORT INFORMATION
  Report Type: 
  Country: None (occurrence: None)
  Receive Date: 20110602
  Receipt Date: 20110518
  Transmission Date: 20111010
  Serious: Yes (Hospitalization)
  Sender: FDA-Public Use
  Company Number: A0789787A

PATIENT
  Age: 60 Year
  Sex: Male
  Weight: 106.8 kg

DRUGS (5)
  1. AVANDIA [Suspect]
     Indication: DIABETES MELLITUS
     Dosage: 8MG TWICE PER DAY
     Route: 048
     Dates: end: 20071003
  2. INSULIN [Concomitant]
  3. LIPITOR [Concomitant]
  4. GLYSET [Concomitant]
  5. METFORMIN HCL [Concomitant]

REACTIONS (4)
  - CEREBROVASCULAR ACCIDENT [None]
  - PULMONARY HYPERTENSION [None]
  - CARDIAC DISORDER [None]
  - CEREBROVASCULAR DISORDER [None]
